FAERS Safety Report 8395812-6 (Version None)
Quarter: 2012Q2

REPORT INFORMATION
  Report Type: 
  Country: None (occurrence: None)
  Receive Date: 20120529
  Receipt Date: 20120529
  Transmission Date: 20120825
  Serious: Yes (Hospitalization)
  Sender: FDA-Public Use
  Company Number: None

PATIENT
  Sex: Female
  Weight: 54.8852 kg

DRUGS (1)
  1. PRADAXA [Suspect]
     Indication: ATRIAL FIBRILLATION
     Dosage: 75 MG BID PO
     Route: 048
     Dates: start: 20120120, end: 20120404

REACTIONS (2)
  - COLON ADENOMA [None]
  - GASTROINTESTINAL HAEMORRHAGE [None]
